FAERS Safety Report 10205180 (Version 1)
Quarter: 2014Q2

REPORT INFORMATION
  Report Type: Spontaneous
  Country: US (occurrence: US)
  Receive Date: 20140529
  Receipt Date: 20140529
  Transmission Date: 20141212
  Serious: No
  Sender: FDA-Public Use
  Company Number: US-GILEAD-2014-0103564

PATIENT
  Age: 49 Year
  Sex: Female

DRUGS (3)
  1. LETAIRIS [Suspect]
     Indication: PRODUCT USED FOR UNKNOWN INDICATION
     Dosage: 10 MG, QD
     Route: 065
     Dates: start: 20071022
  2. FLOLAN [Concomitant]
  3. ADCIRCA [Concomitant]

REACTIONS (3)
  - Syncope [Unknown]
  - Muscle spasms [Unknown]
  - Gallbladder disorder [Unknown]
